FAERS Safety Report 20913338 (Version 1)
Quarter: 2022Q2

REPORT INFORMATION
  Report Type: Report from Study
  Country: US (occurrence: US)
  Receive Date: 20220603
  Receipt Date: 20220603
  Transmission Date: 20220720
  Serious: Yes (Hospitalization, Other)
  Sender: FDA-Public Use
  Company Number: US-JCAR017-FOL-001-1071003-20210805-0001SG

PATIENT
  Age: 43 Year
  Sex: Male
  Weight: 96 kg

DRUGS (31)
  1. CYCLOPHOSPHAMIDE [Suspect]
     Active Substance: CYCLOPHOSPHAMIDE
     Indication: Follicular lymphoma
     Dosage: FREQUENCY TEXT: ONCE?658 MG X ONCE
     Route: 042
     Dates: start: 20210715, end: 20210715
  2. CYCLOPHOSPHAMIDE [Suspect]
     Active Substance: CYCLOPHOSPHAMIDE
     Dosage: FREQUENCY TEXT: ONCE?658 MG X ONCE
     Route: 042
     Dates: start: 20210716, end: 20210716
  3. CYCLOPHOSPHAMIDE [Suspect]
     Active Substance: CYCLOPHOSPHAMIDE
     Dosage: FREQUENCY TEXT: ONCE?658 MG X ONCE
     Route: 042
     Dates: start: 20210717, end: 20210717
  4. FLUDARABINE [Suspect]
     Active Substance: FLUDARABINE PHOSPHATE
     Indication: Follicular lymphoma
     Dosage: FREQUENCY TEXT: ONCE?65 MG X ONCE
     Route: 042
     Dates: start: 20210715, end: 20210715
  5. FLUDARABINE [Suspect]
     Active Substance: FLUDARABINE PHOSPHATE
     Dosage: FREQUENCY TEXT: ONCE?65 MG X ONCE
     Route: 042
     Dates: start: 20210716, end: 20210716
  6. FLUDARABINE [Suspect]
     Active Substance: FLUDARABINE PHOSPHATE
     Dosage: FREQUENCY TEXT: ONCE?65 MG X ONCE
     Route: 042
     Dates: start: 20210717, end: 20210717
  7. ACETAMINOPHEN [Concomitant]
     Active Substance: ACETAMINOPHEN
     Indication: Premedication
     Dosage: 650 MG?FREQUENCY : ONCE
     Route: 048
     Dates: start: 20210716, end: 20210716
  8. ACETAMINOPHEN [Concomitant]
     Active Substance: ACETAMINOPHEN
     Dosage: 650 MG?FREQUENCY : ONCE
     Route: 048
     Dates: start: 20210720, end: 20210720
  9. ACYCLOVIR [Concomitant]
     Active Substance: ACYCLOVIR
     Indication: Infection prophylaxis
     Dosage: 800 MG
     Route: 048
     Dates: start: 20210714, end: 20210729
  10. ALPRAZOLAM [Concomitant]
     Active Substance: ALPRAZOLAM
     Indication: Anxiety
     Dosage: 0.5 MG?FREQUENCY : PRN
     Route: 048
     Dates: start: 20210807
  11. ALPRAZOLAM [Concomitant]
     Active Substance: ALPRAZOLAM
     Dosage: FREQUENCY TEXT: PRN?0.5 MG X PRN
     Dates: start: 20210807
  12. ALPRAZOLAM [Concomitant]
     Active Substance: ALPRAZOLAM
     Dosage: FREQUENCY TEXT: NOT PROVIDED?0.5 MG
     Dates: start: 20210807
  13. DIPHENHYDRAMINE [Concomitant]
     Active Substance: DIPHENHYDRAMINE
     Indication: Premedication
     Dosage: 25 MG?FREQUENCY : ONCE
     Route: 042
     Dates: start: 20210720, end: 20210720
  14. GRANISETRON [Concomitant]
     Active Substance: GRANISETRON
     Indication: Prophylaxis of nausea and vomiting
     Dosage: 1 MG
     Route: 042
     Dates: start: 20210715, end: 20210717
  15. GRANISETRON HYDROCHLORIDE [Concomitant]
     Active Substance: GRANISETRON HYDROCHLORIDE
     Indication: Prophylaxis of nausea and vomiting
     Dosage: 1 MG?FREQUENCY : PRN
     Route: 048
     Dates: start: 20210716, end: 20210727
  16. LORAZEPAM [Concomitant]
     Active Substance: LORAZEPAM
     Indication: Anxiety
     Dosage: 1 MG
     Route: 042
     Dates: start: 20210716, end: 20210717
  17. LORAZEPAM [Concomitant]
     Active Substance: LORAZEPAM
     Dosage: 1 MG?FREQUENCY : PRN
     Route: 048
     Dates: start: 20210716, end: 20210901
  18. ONDANSETRON [Concomitant]
     Active Substance: ONDANSETRON
     Indication: Prophylaxis of nausea and vomiting
     Dosage: 8 MG?FREQUENCY : PRN
     Route: 048
     Dates: start: 20200814, end: 20210714
  19. OXYCODONE [Concomitant]
     Active Substance: OXYCODONE
     Indication: Migraine
     Dosage: 5 MG?FREQUENCY : ONCE
     Route: 048
     Dates: start: 20210720, end: 20210720
  20. OXYCODONE [Concomitant]
     Active Substance: OXYCODONE
     Dosage: 5 MG?FREQUENCY : ONCE
     Route: 048
     Dates: start: 20210721, end: 20210721
  21. OXYCODONE [Concomitant]
     Active Substance: OXYCODONE
     Dosage: 5 MG?FREQUENCY : PRN
     Route: 048
     Dates: start: 20210721, end: 20210901
  22. PROCHLORPERAZINE [Concomitant]
     Active Substance: PROCHLORPERAZINE
     Indication: Nausea
     Dosage: 10 MG?FREQUENCY : ONCE
     Route: 042
     Dates: start: 20210716, end: 20210716
  23. PROCHLORPERAZINE [Concomitant]
     Active Substance: PROCHLORPERAZINE
     Dosage: 5 MG?FREQUENCY : ONCE
     Route: 042
     Dates: start: 20210720, end: 20210720
  24. SUMATRIPTAN [Concomitant]
     Active Substance: SUMATRIPTAN
     Indication: Headache
     Dosage: 25 MG?FREQUENCY : PRN
     Route: 048
     Dates: start: 20210716, end: 20211013
  25. ZOLPIDEM [Concomitant]
     Active Substance: ZOLPIDEM TARTRATE
     Indication: Insomnia
     Dosage: 5 MG
     Route: 048
     Dates: start: 20210517, end: 20210628
  26. POLYETHYLENE GLYCOL [Concomitant]
     Active Substance: POLYETHYLENE GLYCOL
     Indication: Prophylaxis
     Dosage: FREQUENCY TEXT: PRN 17 G X PRN
  27. DOCUSATE SODIUM\SENNOSIDES [Concomitant]
     Active Substance: DOCUSATE SODIUM\SENNOSIDES
     Indication: Constipation prophylaxis
     Dosage: 1 TABLET X 2 X 1 DAYS
  28. NS BOLUS [Concomitant]
     Indication: Prophylaxis
     Dosage: FREQUENCY TEXT: NOT PROVIDED?1,000 ML
     Route: 042
     Dates: start: 20210715, end: 20210715
  29. NS INFUSION [Concomitant]
     Indication: Catheter management
     Dosage: FREQUENCY TEXT: ONCE?250 ML X ONCE
     Route: 042
     Dates: start: 20210715, end: 20210715
  30. NS INJECTION FLUSH [Concomitant]
     Indication: Catheter management
     Dosage: FREQUENCY TEXT: PRN?10 ML X PRN
     Route: 042
     Dates: start: 20210716, end: 20210717
  31. SULFAMETHOXAZOLE\TRIMETHOPRIM [Concomitant]
     Active Substance: SULFAMETHOXAZOLE\TRIMETHOPRIM
     Indication: Pneumocystis jirovecii pneumonia
     Dosage: 800-160 MG X 2 X 1 DAYS
     Dates: start: 20210715

REACTIONS (1)
  - Immune effector cell-associated neurotoxicity syndrome [Recovered/Resolved]

NARRATIVE: CASE EVENT DATE: 20210725
